FAERS Safety Report 4389499-7 (Version None)
Quarter: 2004Q3

REPORT INFORMATION
  Report Type: 
  Country: None (occurrence: None)
  Receive Date: 20040702
  Receipt Date: 20040503
  Transmission Date: 20050211
  Serious: Yes (Congenital Anomaly)
  Sender: FDA-Public Use
  Company Number: NL-GLAXOSMITHKLINE-B0331672A

PATIENT
  Age: 1 Year
  Sex: Female

DRUGS (1)
  1. PAROXETINE HCL [Suspect]

REACTIONS (9)
  - ACQUIRED MACROCEPHALY [None]
  - CONGENITAL BRAIN DAMAGE [None]
  - CONGENITAL CENTRAL NERVOUS SYSTEM ANOMALY [None]
  - CONGENITAL MUSCULOSKELETAL ANOMALY [None]
  - DRUG EXPOSURE DURING PREGNANCY [None]
  - INFANTILE SPASMS [None]
  - MUSCLE SPASTICITY [None]
  - PSYCHOMOTOR RETARDATION [None]
  - VISUAL DISTURBANCE [None]
